FAERS Safety Report 20017916 (Version 16)
Quarter: 2024Q2

REPORT INFORMATION
  Report Type: Spontaneous
  Country: JP (occurrence: JP)
  Receive Date: 20211101
  Receipt Date: 20240425
  Transmission Date: 20240716
  Serious: Yes (Hospitalization, Other)
  Sender: FDA-Public Use
  Company Number: JP-BRISTOL-MYERS SQUIBB COMPANY-BMS-2021-112299

PATIENT
  Age: 68 Year
  Sex: Male
  Weight: 44.4 kg

DRUGS (21)
  1. YERVOY [Suspect]
     Active Substance: IPILIMUMAB
     Indication: Non-small cell lung cancer recurrent
     Dosage: 1 MG/KG
     Route: 041
     Dates: start: 20210902, end: 20220112
  2. YERVOY [Suspect]
     Active Substance: IPILIMUMAB
  3. YERVOY [Suspect]
     Active Substance: IPILIMUMAB
  4. OPDIVO [Suspect]
     Active Substance: NIVOLUMAB
     Indication: Non-small cell lung cancer recurrent
     Route: 041
     Dates: start: 20210902, end: 20211013
  5. OPDIVO [Suspect]
     Active Substance: NIVOLUMAB
     Route: 041
     Dates: start: 20211222, end: 20220112
  6. ANAMORELIN HYDROCHLORIDE [Suspect]
     Active Substance: ANAMORELIN HYDROCHLORIDE
     Indication: Cachexia
     Route: 048
     Dates: start: 20210827, end: 20220112
  7. LOXOPROFEN [Concomitant]
     Active Substance: LOXOPROFEN
     Indication: Product used for unknown indication
     Dosage: 60 MG?8?????1?3?
     Route: 048
     Dates: end: 20220112
  8. LOXOPROFEN [Concomitant]
     Active Substance: LOXOPROFEN
  9. CYTOTEC [Concomitant]
     Active Substance: MISOPROSTOL
     Indication: Prophylaxis
     Dosage: 200 UG?8?????1?3?
     Route: 048
     Dates: end: 20220112
  10. CYTOTEC [Concomitant]
     Active Substance: MISOPROSTOL
  11. CYTOTEC [Concomitant]
     Active Substance: MISOPROSTOL
  12. CYTOTEC [Concomitant]
     Active Substance: MISOPROSTOL
  13. CYTOTEC [Concomitant]
     Active Substance: MISOPROSTOL
  14. LOXOPROFEN SODIUM DIHYDRATE [Concomitant]
     Active Substance: LOXOPROFEN SODIUM DIHYDRATE
     Indication: Product used for unknown indication
     Route: 048
     Dates: end: 20211026
  15. MISOPROSTOL [Concomitant]
     Active Substance: MISOPROSTOL
     Indication: Prophylaxis
     Route: 048
     Dates: end: 20211026
  16. AMPICILLIN POTASSIUM [Concomitant]
     Active Substance: AMPICILLIN POTASSIUM
     Indication: Product used for unknown indication
     Route: 048
     Dates: start: 20210922
  17. NEXIUM [Concomitant]
     Active Substance: ESOMEPRAZOLE MAGNESIUM
     Indication: Product used for unknown indication
     Route: 048
  18. DEXTROMETHORPHAN HYDROBROMIDE [Concomitant]
     Active Substance: DEXTROMETHORPHAN HYDROBROMIDE
     Indication: Non-small cell lung cancer recurrent
     Dosage: 30 MG?8?????1?3?
     Route: 048
     Dates: end: 20220112
  19. LANSOPRAZOLE [Concomitant]
     Active Substance: LANSOPRAZOLE
     Indication: Prophylaxis
     Route: 048
     Dates: end: 20220112
  20. DOCETAXEL [Concomitant]
     Active Substance: DOCETAXEL\DOCETAXEL ANHYDROUS
     Indication: Product used for unknown indication
  21. TS-1 [Concomitant]
     Active Substance: GIMERACIL\OTERACIL POTASSIUM\TEGAFUR
     Indication: Product used for unknown indication

REACTIONS (3)
  - Pulmonary tuberculosis [Unknown]
  - Malignant neoplasm progression [Unknown]
  - Pulmonary toxicity [Unknown]

NARRATIVE: CASE EVENT DATE: 20211006
